FAERS Safety Report 9431488 (Version 1)
Quarter: 2013Q3

REPORT INFORMATION
  Report Type: Spontaneous
  Country: US (occurrence: US)
  Receive Date: 20130730
  Receipt Date: 20130730
  Transmission Date: 20140515
  Serious: No
  Sender: FDA-Public Use
  Company Number: US-009507513-1307USA014570

PATIENT
  Sex: Male

DRUGS (2)
  1. SAPHRIS [Suspect]
     Route: 060
  2. COGENTIN [Concomitant]

REACTIONS (1)
  - Akathisia [Unknown]
